FAERS Safety Report 8334264-9 (Version None)
Quarter: 2012Q2

REPORT INFORMATION
  Report Type: 
  Country: None (occurrence: None)
  Receive Date: 20120503
  Receipt Date: 20120430
  Transmission Date: 20120825
  Serious: Yes (Death, Hospitalization, Other)
  Sender: FDA-Public Use
  Company Number: PHHY2012GR037254

PATIENT
  Age: 80 Year

DRUGS (3)
  1. HALOPERIDOL [Suspect]
  2. QUETIAPINE [Suspect]
     Dosage: 25 MG, BID
  3. ESOMEPRAZOLE [Concomitant]
     Route: 042

REACTIONS (5)
  - PYREXIA [None]
  - PANCREATITIS [None]
  - RENAL FAILURE ACUTE [None]
  - CARDIAC ARREST [None]
  - ACUTE RESPIRATORY DISTRESS SYNDROME [None]
